FAERS Safety Report 9309206 (Version 1)
Quarter: 2013Q2

REPORT INFORMATION
  Report Type: Spontaneous
  Country: US (occurrence: US)
  Receive Date: 20130525
  Receipt Date: 20130525
  Transmission Date: 20140414
  Serious: No
  Sender: FDA-Public Use
  Company Number: US-BRISTOL-MYERS SQUIBB COMPANY-18697680

PATIENT
  Sex: 0

DRUGS (1)
  1. BYDUREON [Suspect]

REACTIONS (3)
  - Blood glucose increased [Recovered/Resolved]
  - Nausea [Unknown]
  - Vomiting [Unknown]
